FAERS Safety Report 9559858 (Version 2)
Quarter: 2013Q4

REPORT INFORMATION
  Report Type: Spontaneous
  Country: FR (occurrence: FR)
  Receive Date: 20130927
  Receipt Date: 20131014
  Transmission Date: 20140711
  Serious: Yes (Hospitalization)
  Sender: FDA-Public Use
  Company Number: FR-SANOFI-AVENTIS-2013SA093642

PATIENT
  Age: 48 Year
  Sex: Male

DRUGS (5)
  1. DEPAMIDE [Suspect]
     Indication: DEPRESSION
     Route: 065
     Dates: start: 201206
  2. STILNOX [Suspect]
     Indication: DEPRESSION
     Route: 048
     Dates: start: 201206
  3. SIMVASTATIN [Suspect]
     Indication: DYSLIPIDAEMIA
     Route: 048
     Dates: start: 2005
  4. DEROXAT [Suspect]
     Indication: DEPRESSION
     Route: 048
     Dates: start: 201206
  5. VALIUM [Suspect]
     Indication: DEPRESSION
     Route: 048
     Dates: start: 20130715

REACTIONS (1)
  - Lymphopenia [Recovered/Resolved]
